FAERS Safety Report 10381651 (Version 1)
Quarter: 2014Q3

REPORT INFORMATION
  Report Type: Spontaneous
  Country: US (occurrence: US)
  Receive Date: 20140813
  Receipt Date: 20140813
  Transmission Date: 20150326
  Serious: Yes (Other)
  Sender: FDA-Public Use
  Company Number: US-WATSON-2014-17299

PATIENT
  Sex: Male

DRUGS (1)
  1. BUPROPION HYDROCHLORIDE (WATSON LABORATORIES) [Suspect]
     Active Substance: BUPROPION HYDROCHLORIDE
     Indication: PRODUCT USED FOR UNKNOWN INDICATION
     Dosage: 300 MG, DAILY
     Route: 048
     Dates: start: 201405

REACTIONS (4)
  - Hypersomnia [Unknown]
  - Loss of consciousness [Unknown]
  - Fall [Unknown]
  - Thermal burn [Unknown]

NARRATIVE: CASE EVENT DATE: 201405
